FAERS Safety Report 21525962 (Version 1)
Quarter: 2022Q4

REPORT INFORMATION
  Report Type: Spontaneous
  Country: CN (occurrence: None)
  Receive Date: 20221031
  Receipt Date: 20221031
  Transmission Date: 20230113
  Serious: Yes (Other)
  Sender: FDA-Public Use
  Company Number: CN-ROCHE-3207374

PATIENT
  Age: 45 Year
  Sex: Female
  Weight: 56.3 kg

DRUGS (5)
  1. HERCEPTIN [Suspect]
     Active Substance: TRASTUZUMAB
     Indication: Invasive ductal breast carcinoma
     Dosage: FIRST DOSE 8 MG/KG FOLLOWED BY 6 MG/KG D1 21 DAYS A CYCLE TO COMPLETE ONE YEAR OF?TREATMENT
     Route: 041
     Dates: start: 20220921, end: 20220927
  2. DOCETAXEL [Suspect]
     Active Substance: DOCETAXEL
     Indication: Invasive ductal breast carcinoma
     Dosage: 110MG D1 21 DAYS A CYCLE SIX CYCLES
     Route: 041
     Dates: start: 20220921, end: 20220927
  3. CARBOPLATIN [Suspect]
     Active Substance: CARBOPLATIN
     Indication: Invasive ductal breast carcinoma
     Dosage: 0.6G D1 21 DAYS A CYCLE SIX CYCLES
     Route: 041
     Dates: start: 20220921, end: 20220927
  4. SODIUM CHLORIDE [Concomitant]
     Active Substance: SODIUM CHLORIDE
     Indication: Invasive ductal breast carcinoma
     Route: 041
     Dates: start: 20210921, end: 20220927
  5. DEXTROSE [Concomitant]
     Active Substance: DEXTROSE
     Indication: Invasive ductal breast carcinoma
     Route: 041
     Dates: start: 20210921, end: 20220927

REACTIONS (1)
  - Myelosuppression [Unknown]

NARRATIVE: CASE EVENT DATE: 20220927
